FAERS Safety Report 8464269 (Version 4)
Quarter: 2012Q4

REPORT INFORMATION
  Report Type: 
  Country: US (occurrence: US)
  Receive Date: 20120316
  Receipt Date: 20121228
  Transmission Date: 20130627
  Serious: Yes (Hospitalization, Other)
  Sender: FDA-Public Use
  Company Number: US-ASTRAZENECA-2012SE16820

PATIENT
  Age: 51 Year
  Sex: Male

DRUGS (5)
  1. NEXIUM [Suspect]
     Route: 048
  2. PRILOSEC [Suspect]
     Route: 048
  3. ZANTAC [Suspect]
     Route: 065
  4. FAMOTIDINE [Concomitant]
  5. PEPCID [Concomitant]

REACTIONS (12)
  - Gastrooesophageal reflux disease [Unknown]
  - Erosive oesophagitis [Unknown]
  - Haematemesis [Unknown]
  - Haemoglobin decreased [Unknown]
  - Bronchitis chronic [Unknown]
  - Hypertension [Unknown]
  - Pain [Unknown]
  - Gastrooesophageal reflux disease [Unknown]
  - Anxiety [Unknown]
  - Depression [Unknown]
  - Chronic obstructive pulmonary disease [Unknown]
  - Drug dose omission [Unknown]
